FAERS Safety Report 19639793 (Version 1)
Quarter: 2021Q3

REPORT INFORMATION
  Report Type: Spontaneous
  Country: US (occurrence: US)
  Receive Date: 20210730
  Receipt Date: 20210730
  Transmission Date: 20211014
  Serious: Yes (Hospitalization)
  Sender: FDA-Public Use
  Company Number: US-ASTRAZENECA-2021A643686

PATIENT
  Age: 62 Year
  Sex: Male

DRUGS (10)
  1. LANTUS [Concomitant]
     Active Substance: INSULIN GLARGINE
  2. METFORMIN [Concomitant]
     Active Substance: METFORMIN HYDROCHLORIDE
  3. HUMALOG [Concomitant]
     Active Substance: INSULIN LISPRO
  4. LIPITOR [Concomitant]
     Active Substance: ATORVASTATIN CALCIUM
     Dosage: 20.0MG UNKNOWN
  5. ZETIA [Concomitant]
     Active Substance: EZETIMIBE
     Dosage: 10.0MG UNKNOWN
  6. FLOMAX [Concomitant]
     Active Substance: TAMSULOSIN HYDROCHLORIDE
     Dosage: 0.4
  7. PLAVIX [Concomitant]
     Active Substance: CLOPIDOGREL BISULFATE
  8. MICARDIS [Concomitant]
     Active Substance: TELMISARTAN
     Dosage: 40.0MG ONCE/SINGLE ADMINISTRATION
  9. FARXIGA [Suspect]
     Active Substance: DAPAGLIFLOZIN PROPANEDIOL
     Dosage: 10 MG ONCE
     Route: 048
     Dates: start: 20210616, end: 20210715
  10. VALSARTAN. [Concomitant]
     Active Substance: VALSARTAN
     Dosage: 40.0MG ONCE/SINGLE ADMINISTRATION

REACTIONS (1)
  - Renal failure [Unknown]

NARRATIVE: CASE EVENT DATE: 20210715
